FAERS Safety Report 5206623-4 (Version None)
Quarter: 2006Q4

REPORT INFORMATION
  Report Type: 
  Country: None (occurrence: None)
  Receive Date: 20061026
  Receipt Date: 20060705
  Transmission Date: 20070319
  Serious: No
  Sender: FDA-Public Use
  Company Number: 2006085618

PATIENT
  Age: 46 Year
  Sex: Female
  Weight: 71.6683 kg

DRUGS (4)
  1. LYRICA [Suspect]
     Indication: SCIATICA
     Dosage: 150 MG (50 MG,3 IN 1 D)
     Dates: start: 20060625, end: 20060701
  2. CRESTOR [Suspect]
     Indication: BLOOD CHOLESTEROL INCREASED
     Dates: start: 20060625, end: 20060701
  3. ELAVIL [Concomitant]
  4. MOBIC [Concomitant]

REACTIONS (4)
  - BLADDER PAIN [None]
  - CONDITION AGGRAVATED [None]
  - PAIN [None]
  - POLLAKIURIA [None]
